FAERS Safety Report 7987295-2 (Version None)
Quarter: 2011Q4

REPORT INFORMATION
  Report Type: 
  Country: None (occurrence: None)
  Receive Date: 20111216
  Receipt Date: 20110811
  Transmission Date: 20120403
  Serious: No
  Sender: FDA-Public Use
  Company Number: US-BRISTOL-MYERS SQUIBB COMPANY-15647233

PATIENT
  Age: 33 Year
  Sex: Female

DRUGS (3)
  1. ABILIFY [Suspect]
     Indication: DEPRESSION
     Dosage: DOSE REDUCED
     Route: 048
     Dates: start: 20110221, end: 20110404
  2. CYMBALTA [Suspect]
  3. ABILIFY [Suspect]
     Indication: ANXIETY
     Dosage: DOSE REDUCED
     Route: 048
     Dates: start: 20110221, end: 20110404

REACTIONS (6)
  - RESTLESS LEGS SYNDROME [None]
  - ANXIETY [None]
  - RESTLESSNESS [None]
  - WEIGHT INCREASED [None]
  - NERVOUSNESS [None]
  - INCREASED APPETITE [None]
